FAERS Safety Report 23161561 (Version 1)
Quarter: 2023Q4

REPORT INFORMATION
  Report Type: Spontaneous
  Country: US (occurrence: US)
  Receive Date: 20231108
  Receipt Date: 20231108
  Transmission Date: 20240110
  Serious: No
  Sender: FDA-Public Use
  Company Number: US-JNJFOC-20231110606

PATIENT
  Sex: Female

DRUGS (5)
  1. XARELTO [Suspect]
     Active Substance: RIVAROXABAN
     Indication: Deep vein thrombosis
     Route: 048
  2. XARELTO [Suspect]
     Active Substance: RIVAROXABAN
     Indication: Pulmonary embolism
     Route: 048
  3. JARDIANCE [Concomitant]
     Active Substance: EMPAGLIFLOZIN
  4. HYDROCORTISONE [Concomitant]
     Active Substance: HYDROCORTISONE
  5. DULOXETINE [Concomitant]
     Active Substance: DULOXETINE

REACTIONS (2)
  - Feeling abnormal [Unknown]
  - Haematoma [Recovering/Resolving]
